FAERS Safety Report 25900444 (Version 1)
Quarter: 2025Q4

REPORT INFORMATION
  Report Type: Spontaneous
  Country: US (occurrence: US)
  Receive Date: 20251009
  Receipt Date: 20251009
  Transmission Date: 20260117
  Serious: Yes (Death, Hospitalization, Other)
  Sender: Onesource Specialty Pharma
  Company Number: US-STRIDES ARCOLAB LIMITED-2025OS000882

PATIENT
  Age: 76 Year
  Sex: Female

DRUGS (20)
  1. GANCICLOVIR SODIUM [Suspect]
     Active Substance: GANCICLOVIR SODIUM
     Indication: Human herpesvirus 6 encephalitis
     Dosage: RENALLY DOSED
     Route: 042
  2. THIAMINE [Suspect]
     Active Substance: THIAMINE
     Indication: Wernicke^s encephalopathy
     Dosage: 500 MILLIGRAM, TID
     Route: 042
     Dates: start: 2025
  3. ETOPOSIDE [Suspect]
     Active Substance: ETOPOSIDE
     Indication: Follicular lymphoma
     Dosage: UNK
     Route: 065
     Dates: start: 202005
  4. DEXAMETHASONE [Suspect]
     Active Substance: DEXAMETHASONE
     Indication: Immune effector cell-associated neurotoxicity syndrome
     Dosage: 10 MILLIGRAM, QD
     Route: 042
     Dates: start: 2025
  5. MOSUNETUZUMAB [Concomitant]
     Active Substance: MOSUNETUZUMAB
     Indication: Follicular lymphoma
     Dosage: CYCLE 1 DAY 1; EVERY THREE WEEKS
     Route: 042
     Dates: start: 202411
  6. MOSUNETUZUMAB [Concomitant]
     Active Substance: MOSUNETUZUMAB
     Dosage: CYCLE 1 DAY 8; EVERY THREE WEEKS
     Route: 042
  7. MOSUNETUZUMAB [Concomitant]
     Active Substance: MOSUNETUZUMAB
     Dosage: CYCLE 1 DAY 15; EVERY THREE WEEKS
     Route: 042
  8. MOSUNETUZUMAB [Concomitant]
     Active Substance: MOSUNETUZUMAB
     Dosage: CYCLE 2 DAY 1; EVERY THREE WEEKS
     Route: 042
  9. MOSUNETUZUMAB [Concomitant]
     Active Substance: MOSUNETUZUMAB
     Dosage: CYCLE 3 DAY 1; EVERY THREE WEEKS
     Route: 042
  10. MOSUNETUZUMAB [Concomitant]
     Active Substance: MOSUNETUZUMAB
     Dosage: UNK
     Route: 042
     Dates: start: 202503
  11. ACYCLOVIR [Concomitant]
     Active Substance: ACYCLOVIR
     Indication: Evidence based treatment
     Dosage: 10 MILLIGRAM/KILOGRAM
     Route: 065
     Dates: start: 2025
  12. BENDAMUSTINE [Concomitant]
     Active Substance: BENDAMUSTINE
     Indication: Follicular lymphoma
     Dosage: UNK
     Route: 065
  13. BENDAMUSTINE [Concomitant]
     Active Substance: BENDAMUSTINE
     Dosage: UNK
     Route: 065
     Dates: start: 202212, end: 202302
  14. RITUXIMAB [Concomitant]
     Active Substance: RITUXIMAB
     Indication: Follicular lymphoma
     Dosage: UNK
     Route: 065
  15. RITUXIMAB [Concomitant]
     Active Substance: RITUXIMAB
     Dosage: UNK
     Route: 065
     Dates: start: 202005
  16. RITUXIMAB [Concomitant]
     Active Substance: RITUXIMAB
     Dosage: UNK
     Route: 065
     Dates: start: 202212, end: 202302
  17. CYCLOPHOSPHAMIDE [Concomitant]
     Active Substance: CYCLOPHOSPHAMIDE
     Indication: Follicular lymphoma
     Dosage: UNK
     Route: 065
     Dates: start: 202005
  18. VINCRISTINE [Concomitant]
     Active Substance: VINCRISTINE
     Indication: Follicular lymphoma
     Dosage: UNK
     Route: 065
     Dates: start: 202005
  19. PREDNISONE [Concomitant]
     Active Substance: PREDNISONE
     Indication: Follicular lymphoma
     Dosage: UNK
     Route: 065
     Dates: start: 202005
  20. CEFEPIME [Concomitant]
     Active Substance: CEFEPIME HYDROCHLORIDE
     Indication: Product used for unknown indication
     Dosage: UNK
     Route: 065

REACTIONS (3)
  - Drug ineffective for unapproved indication [Fatal]
  - Drug ineffective [Unknown]
  - Off label use [Unknown]

NARRATIVE: CASE EVENT DATE: 20250101
